FAERS Safety Report 12249560 (Version 2)
Quarter: 2016Q2

REPORT INFORMATION
  Report Type: Spontaneous
  Country: GB (occurrence: GB)
  Receive Date: 20160408
  Receipt Date: 20160524
  Transmission Date: 20160815
  Serious: Yes (Other)
  Sender: FDA-Public Use
  Company Number: GB-AMGEN-GBRSP2016043563

PATIENT
  Age: 37 Year
  Sex: Female

DRUGS (1)
  1. NEUPOGEN [Suspect]
     Active Substance: FILGRASTIM
     Indication: PRODUCT USED FOR UNKNOWN INDICATION
     Dosage: UNK, UNK
     Route: 065

REACTIONS (7)
  - Glossodynia [Unknown]
  - Foot fracture [Unknown]
  - Heart rate increased [Unknown]
  - Dry skin [Unknown]
  - Urinary retention [Recovering/Resolving]
  - Alopecia [Unknown]
  - Constipation [Unknown]

NARRATIVE: CASE EVENT DATE: 20160331
